FAERS Safety Report 18259104 (Version 4)
Quarter: 2023Q1

REPORT INFORMATION
  Report Type: Spontaneous
  Country: FR (occurrence: FR)
  Receive Date: 20200911
  Receipt Date: 20230306
  Transmission Date: 20230417
  Serious: Yes (Other)
  Sender: FDA-Public Use
  Company Number: NVSC2020FR245680

PATIENT
  Age: 87 Year
  Sex: Female
  Weight: 77 kg

DRUGS (6)
  1. LETROZOLE [Suspect]
     Active Substance: LETROZOLE
     Indication: Product used for unknown indication
     Dosage: 2.5 MG, QD (2.5 MG, 1X/DAY (1 DF OF 2.5 MG PER DAY)
     Route: 065
     Dates: start: 20200303
  2. IBRANCE [Suspect]
     Active Substance: PALBOCICLIB
     Indication: Product used for unknown indication
     Dosage: 125 MG, QD (125 MG, 1X/DAY)
     Route: 065
     Dates: start: 20200227, end: 20200827
  3. IBRANCE [Suspect]
     Active Substance: PALBOCICLIB
     Dosage: 125 MG, CYCLIC (125 MG, EVERY DAY FOR 21 DAYS THEN 7 DAY BREAK )
     Route: 065
     Dates: start: 20200903
  4. CHOLECALCIFEROL [Concomitant]
     Active Substance: CHOLECALCIFEROL
     Indication: Vitamin D deficiency
     Dosage: UNK (UNK)
     Route: 048
     Dates: start: 20200217
  5. CALCIUM\CHOLECALCIFEROL [Concomitant]
     Active Substance: CALCIUM\CHOLECALCIFEROL
     Indication: Vitamin D deficiency
     Dosage: UNK (UNK)
     Route: 048
     Dates: start: 20200227
  6. IRBESARTAN [Concomitant]
     Active Substance: IRBESARTAN
     Indication: Hypertension
     Dosage: UNK (UNK)
     Route: 048
     Dates: start: 20200217

REACTIONS (5)
  - Bradycardia [Recovered/Resolved]
  - Atrioventricular block complete [Recovered/Resolved]
  - Fatigue [Recovered/Resolved]
  - Dyspnoea [Recovering/Resolving]
  - Vertigo [Recovered/Resolved]

NARRATIVE: CASE EVENT DATE: 20200627
